FAERS Safety Report 18058709 (Version 1)
Quarter: 2020Q3

REPORT INFORMATION
  Report Type: Spontaneous
  Country: US (occurrence: US)
  Receive Date: 20200722
  Receipt Date: 20200722
  Transmission Date: 20201103
  Serious: Yes (Life-Threatening, Hospitalization, Disabling)
  Sender: FDA-Public Use
  Company Number: None

PATIENT
  Age: 3 Year
  Sex: Female
  Weight: 16.65 kg

DRUGS (5)
  1. G?TUBE [Concomitant]
  2. FLOWVENT [Concomitant]
  3. KEPPRA [Concomitant]
     Active Substance: LEVETIRACETAM
  4. MIRALAX [Suspect]
     Active Substance: POLYETHYLENE GLYCOL 3350
     Indication: CONSTIPATION
     Dosage: ?          QUANTITY:.5 CAP;OTHER ROUTE:INTO STOMACH VIA G?TUBE?
     Dates: start: 20181128, end: 20200717
  5. ALBUTEROL. [Concomitant]
     Active Substance: ALBUTEROL

REACTIONS (3)
  - Seizure [None]
  - Disturbance in attention [None]
  - Musculoskeletal disorder [None]

NARRATIVE: CASE EVENT DATE: 20181128
